FAERS Safety Report 9658508 (Version 2)
Quarter: 2013Q4

REPORT INFORMATION
  Report Type: Spontaneous
  Country: US (occurrence: US)
  Receive Date: 20131030
  Receipt Date: 20131030
  Transmission Date: 20140711
  Serious: No
  Sender: FDA-Public Use
  Company Number: US-PURDUE-USA-2010-0055643

PATIENT
  Sex: Male

DRUGS (1)
  1. OXYCONTIN (NDA 22-272) [Suspect]
     Indication: BACK DISORDER
     Dosage: 80 MG, BID
     Dates: start: 201008

REACTIONS (3)
  - Therapeutic response delayed [Unknown]
  - Drug effect decreased [Unknown]
  - Drug intolerance [Unknown]
